FAERS Safety Report 7274152-2 (Version None)
Quarter: 2011Q1

REPORT INFORMATION
  Report Type: 
  Country: None (occurrence: None)
  Receive Date: 20110204
  Receipt Date: 20110128
  Transmission Date: 20110831
  Serious: No
  Sender: FDA-Public Use
  Company Number: US-BIOGENIDEC-2011BI003328

PATIENT
  Age: 40 Year
  Sex: Female

DRUGS (1)
  1. TYSABRI [Suspect]
     Indication: MULTIPLE SCLEROSIS
     Route: 042
     Dates: start: 20090708, end: 20100901

REACTIONS (7)
  - HEADACHE [None]
  - HYPERTENSION [None]
  - ANAEMIA [None]
  - DIZZINESS [None]
  - SWELLING [None]
  - COUGH [None]
  - VITAMIN D DEFICIENCY [None]
